FAERS Safety Report 8878656 (Version 2)
Quarter: 2012Q4

REPORT INFORMATION
  Report Type: 
  Country: GB (occurrence: GB)
  Receive Date: 20121026
  Receipt Date: 20121226
  Transmission Date: 20130627
  Serious: Yes (Hospitalization, Other)
  Sender: FDA-Public Use
  Company Number: PHFR2012GB005356

PATIENT
  Age: 30 Year
  Sex: Male

DRUGS (4)
  1. CLOZARIL [Suspect]
     Indication: SCHIZOPHRENIA
     Dosage: UNK UKN, UNK
     Route: 048
     Dates: start: 20010701
  2. CLOZARIL [Suspect]
     Dosage: 200 mg,
     Route: 048
     Dates: start: 20121003
  3. QUETIAPINE [Concomitant]
     Indication: PSYCHOTIC DISORDER
     Dosage: 400 mg,
     Route: 048
  4. LORAZEPAM [Concomitant]
     Indication: ANXIETY
     Dosage: 0.5 mg, PRN
     Route: 048

REACTIONS (2)
  - Psychotic disorder [Unknown]
  - Overdose [Recovered/Resolved]
